FAERS Safety Report 8383091-5 (Version None)
Quarter: 2012Q2

REPORT INFORMATION
  Report Type: 
  Country: None (occurrence: None)
  Receive Date: 20120524
  Receipt Date: 20120517
  Transmission Date: 20120825
  Serious: Yes (Death, Hospitalization)
  Sender: FDA-Public Use
  Company Number: US-JNJFOC-20111104976

PATIENT
  Sex: Female
  Weight: 52.16 kg

DRUGS (6)
  1. EXTRA STRENGTH TYLENOL [Suspect]
     Indication: DYSMENORRHOEA
     Dosage: TOTAL OF 12 OVER 3-4 DAYS AND 3250 MG THE DAY PRIOR TO PRESENTATION.
  2. COCAINE [Concomitant]
     Indication: PRODUCT USED FOR UNKNOWN INDICATION
  3. ALCOHOL BEVERAGE [Suspect]
     Indication: PRODUCT USED FOR UNKNOWN INDICATION
  4. ASTHMA INHALERS [Concomitant]
     Indication: ASTHMA
  5. EXTRA STRENGTH TYLENOL [Suspect]
  6. MARIJUANA [Concomitant]
     Indication: PRODUCT USED FOR UNKNOWN INDICATION

REACTIONS (2)
  - TOXICITY TO VARIOUS AGENTS [None]
  - ACUTE HEPATIC FAILURE [None]
